FAERS Safety Report 10440756 (Version 1)
Quarter: 2014Q3

REPORT INFORMATION
  Report Type: Spontaneous
  Country: US (occurrence: None)
  Receive Date: 20140908
  Receipt Date: 20140908
  Transmission Date: 20150326
  Serious: Yes (Hospitalization)
  Sender: FDA-Public Use
  Company Number: None

PATIENT
  Age: 70 Year
  Sex: Female
  Weight: 101 kg

DRUGS (1)
  1. INVOKANA [Suspect]
     Active Substance: CANAGLIFLOZIN
     Indication: GLYCOSYLATED HAEMOGLOBIN DECREASED
     Dosage: 1 PILL ONCE DAILY TAKEN BY MOUTH
     Route: 048
     Dates: start: 20140822, end: 20140831

REACTIONS (8)
  - Sepsis [None]
  - Feeling abnormal [None]
  - Blood glucose increased [None]
  - Heart rate increased [None]
  - Myocardial infarction [None]
  - Dehydration [None]
  - Urinary tract infection [None]
  - Mobility decreased [None]

NARRATIVE: CASE EVENT DATE: 20140901
